FAERS Safety Report 6714941-3 (Version None)
Quarter: 2010Q2

REPORT INFORMATION
  Report Type: 
  Country: None (occurrence: None)
  Receive Date: 20100507
  Receipt Date: 20100426
  Transmission Date: 20101027
  Serious: Yes (Other)
  Sender: FDA-Public Use
  Company Number: GB-JNJFOC-20080600020

PATIENT
  Sex: Female
  Weight: 77 kg

DRUGS (9)
  1. PREZISTA [Suspect]
     Indication: DRUG USE FOR UNKNOWN INDICATION
     Route: 048
  2. RITONAVIR [Concomitant]
     Route: 048
  3. FUZEON [Concomitant]
     Route: 058
  4. TENOFOVIR DISOPROXIL FUMARATE [Concomitant]
     Route: 048
  5. IRON SULPHATE [Concomitant]
     Route: 048
  6. SODIUM VALPROATE [Concomitant]
     Route: 048
  7. OMEPRAZOLE [Concomitant]
     Route: 048
  8. AMITRIPTLINE HYDROCHLORIDE TAB [Concomitant]
     Route: 048
  9. ASPIRIN [Concomitant]
     Route: 048

REACTIONS (1)
  - LOSS OF CONSCIOUSNESS [None]
